FAERS Safety Report 8275886-3 (Version None)
Quarter: 2012Q2

REPORT INFORMATION
  Report Type: 
  Country: None (occurrence: None)
  Receive Date: 20120412
  Receipt Date: 20120404
  Transmission Date: 20120825
  Serious: Yes (Other)
  Sender: FDA-Public Use
  Company Number: US-BAYER-2011-114327

PATIENT
  Age: 33 Year
  Sex: Female
  Weight: 79.819 kg

DRUGS (15)
  1. EXCEDRIN (MIGRAINE) [Concomitant]
     Indication: HEADACHE
     Route: 048
  2. LOVAZA [Concomitant]
     Dosage: UNK UNK, QD
     Route: 048
  3. ZYRTEC [Concomitant]
     Indication: MULTIPLE ALLERGIES
     Dosage: 10 MG, UNK
  4. FLUTICASONE FUROATE [Concomitant]
     Dosage: UNK
     Dates: start: 20090101
  5. YAZ [Suspect]
     Indication: CONTRACEPTION
     Dosage: UNK
     Dates: start: 20070701, end: 20100226
  6. CHROMIUM CHLORIDE [Concomitant]
     Dosage: 200 MG, QD
     Route: 048
  7. IMITREX [Concomitant]
     Dosage: UNK UNK, PRN
     Dates: start: 20010101
  8. WELLBUTRIN [Concomitant]
     Indication: DEPRESSION
     Dosage: 300 MG, UNK
     Route: 048
     Dates: start: 20030101
  9. FIBER PILLS [Concomitant]
     Dosage: 2 G, UNK
     Route: 048
  10. ASCORBIC ACID [Concomitant]
     Dosage: UNK UNK, PRN
     Dates: start: 20060101
  11. VITAMIN D [Concomitant]
     Dosage: 400UNITS DAILY
     Route: 048
  12. CO Q-10 [Concomitant]
     Dosage: 100 MG, QD
     Route: 048
  13. COLD SYMPTOM MEDS [Concomitant]
     Dosage: 2 EVERY 4 HOURS
     Route: 048
  14. FLAXSEED OIL [Concomitant]
     Dosage: 1300 MG, QD
     Route: 048
  15. NSAID'S [Concomitant]
     Dosage: UNK UNK, PRN
     Dates: start: 20010101

REACTIONS (4)
  - CHOLELITHIASIS [None]
  - ABDOMINAL DISCOMFORT [None]
  - CHOLECYSTITIS CHRONIC [None]
  - PAIN [None]
